FAERS Safety Report 19238757 (Version 1)
Quarter: 2021Q2

REPORT INFORMATION
  Report Type: Spontaneous
  Country: IT (occurrence: IT)
  Receive Date: 20210510
  Receipt Date: 20210510
  Transmission Date: 20210717
  Serious: Yes (Hospitalization)
  Sender: FDA-Public Use
  Company Number: IT-GLAXOSMITHKLINE-ITCH2021026216

PATIENT
  Age: 22 Year
  Sex: Male
  Weight: 77 kg

DRUGS (1)
  1. VOLTADVANCE [Suspect]
     Active Substance: DICLOFENAC SODIUM
     Indication: ARTHRALGIA
     Dosage: 25 MG, (1 AS NECESSARY)
     Route: 048
     Dates: start: 20210425, end: 20210426

REACTIONS (1)
  - Rash [Recovering/Resolving]

NARRATIVE: CASE EVENT DATE: 20210426
